FAERS Safety Report 9097053 (Version 1)
Quarter: 2013Q1

REPORT INFORMATION
  Report Type: Spontaneous
  Country: IT (occurrence: None)
  Receive Date: 20130125
  Receipt Date: 20130125
  Transmission Date: 20140127
  Serious: Yes (Other)
  Sender: FDA-Public Use
  Company Number: 2013P1000725

PATIENT
  Age: 76 Year
  Sex: Female

DRUGS (1)
  1. GABAPENTIN [Suspect]
     Indication: PERIPHERAL SENSORY NEUROPATHY
     Dosage: 900 MG; QD;?UNKNOWN  -  UNKNOWN

REACTIONS (12)
  - Treatment noncompliance [None]
  - Therapy cessation [None]
  - Incoherent [None]
  - Abnormal behaviour [None]
  - Restlessness [None]
  - Persecutory delusion [None]
  - Disturbance in attention [None]
  - Agitation [None]
  - Anxiety [None]
  - Psychiatric symptom [None]
  - Somnolence [None]
  - Withdrawal syndrome [None]
